FAERS Safety Report 9447957 (Version 1)
Quarter: 2013Q3

REPORT INFORMATION
  Report Type: Spontaneous
  Country: BR (occurrence: BR)
  Receive Date: 20130808
  Receipt Date: 20130808
  Transmission Date: 20140515
  Serious: Yes (Other)
  Sender: FDA-Public Use
  Company Number: PHHY2013BR083754

PATIENT
  Age: 63 Year
  Sex: Female
  Weight: 58 kg

DRUGS (2)
  1. ACLASTA [Suspect]
     Indication: OSTEOPOROSIS
     Dosage: UNK UKN, UNK
     Route: 042
     Dates: start: 20130729
  2. CALCIUM AND VIT D [Concomitant]
     Indication: ARTHRITIS
     Dosage: 2 DF, (2 TABLETS) DAILY
     Route: 048
     Dates: start: 201301

REACTIONS (20)
  - Ageusia [Not Recovered/Not Resolved]
  - Swelling face [Not Recovered/Not Resolved]
  - Nasal cavity mass [Recovering/Resolving]
  - Dyspnoea [Recovered/Resolved]
  - Nasal discomfort [Not Recovered/Not Resolved]
  - Scab [Recovering/Resolving]
  - Local swelling [Recovering/Resolving]
  - Skin discolouration [Recovering/Resolving]
  - Acne [Recovering/Resolving]
  - Gait disturbance [Not Recovered/Not Resolved]
  - Nasal dryness [Not Recovered/Not Resolved]
  - Local swelling [Not Recovered/Not Resolved]
  - Pain [Not Recovered/Not Resolved]
  - Pain in extremity [Not Recovered/Not Resolved]
  - Back pain [Recovered/Resolved]
  - Neck pain [Not Recovered/Not Resolved]
  - Headache [Not Recovered/Not Resolved]
  - Muscle spasms [Not Recovered/Not Resolved]
  - Dysgeusia [Not Recovered/Not Resolved]
  - Arthralgia [Recovering/Resolving]
